FAERS Safety Report 4725640-1 (Version None)
Quarter: 2005Q3

REPORT INFORMATION
  Report Type: 
  Country: None (occurrence: None)
  Receive Date: 20050727
  Receipt Date: 20050411
  Transmission Date: 20060218
  Serious: Yes (Death, Hospitalization)
  Sender: FDA-Public Use
  Company Number: US-MERCK-0504USA01611

PATIENT
  Age: 60 Year
  Sex: Female
  Weight: 91 kg

DRUGS (5)
  1. VIOXX [Suspect]
     Indication: PAIN IN EXTREMITY
     Route: 048
     Dates: start: 20020305, end: 20030301
  2. KEPPRA [Concomitant]
     Indication: CONVULSION
     Route: 065
  3. EFFEXOR [Concomitant]
     Indication: DEPRESSION
     Route: 065
  4. TOPAMAX [Concomitant]
     Indication: CONVULSION
     Route: 065
  5. HYDROCODONE BITARTRATE + ACETAMINOPHEN [Concomitant]
     Indication: PAIN
     Route: 065

REACTIONS (20)
  - ADVERSE EVENT [None]
  - ATHEROSCLEROSIS [None]
  - ATRIAL FIBRILLATION [None]
  - BIPOLAR DISORDER [None]
  - BONE DISORDER [None]
  - BRADYCARDIA [None]
  - CARDIAC FAILURE CONGESTIVE [None]
  - CATARACT [None]
  - CONVULSION [None]
  - DIABETES MELLITUS [None]
  - DIABETIC NEPHROPATHY [None]
  - DIABETIC NEUROPATHY [None]
  - GASTRITIS [None]
  - GASTROINTESTINAL HAEMORRHAGE [None]
  - GRAFT THROMBOSIS [None]
  - HYPERTENSION [None]
  - HYPOGLYCAEMIA [None]
  - MAJOR DEPRESSION [None]
  - MYOCARDIAL INFARCTION [None]
  - RENAL FAILURE CHRONIC [None]
